FAERS Safety Report 16311807 (Version 4)
Quarter: 2020Q2

REPORT INFORMATION
  Report Type: Spontaneous
  Country: DE (occurrence: DE)
  Receive Date: 20190514
  Receipt Date: 20200612
  Transmission Date: 20200713
  Serious: Yes (Hospitalization)
  Sender: FDA-Public Use
  Company Number: PHHY2019DE106185

PATIENT
  Age: 56 Year
  Sex: Male
  Weight: 64 kg

DRUGS (4)
  1. DOCETAXEL. [Suspect]
     Active Substance: DOCETAXEL
     Indication: NON-SMALL CELL LUNG CANCER
     Dosage: 65 MG/M2, QD (TOTAL DAILY DOSE 65MG / M2 BSA)
     Route: 042
  2. VARGATEF [Suspect]
     Active Substance: NINTEDANIB
     Indication: NON-SMALL CELL LUNG CANCER
     Dosage: 400 MG, QD
     Route: 048
     Dates: start: 20190405, end: 20190408
  3. DOCETAXEL. [Suspect]
     Active Substance: DOCETAXEL
     Indication: LUNG ADENOCARCINOMA
     Dosage: FORMULATION: LIQUID.  TOTAL DAILY DOSE: 65MG / M2 BSA
     Route: 042
     Dates: start: 20190404
  4. VARGATEF [Suspect]
     Active Substance: NINTEDANIB
     Indication: LUNG ADENOCARCINOMA

REACTIONS (11)
  - Leukocytosis [Recovered/Resolved]
  - Pneumonia [Recovered/Resolved]
  - Ocular discomfort [Recovered/Resolved]
  - Vomiting [Recovered/Resolved]
  - Cardiovascular disorder [Recovered/Resolved]
  - Febrile neutropenia [Recovered/Resolved]
  - Respiratory tract infection [Recovered/Resolved]
  - White blood cell count decreased [Recovered/Resolved]
  - Pneumonitis [Recovered/Resolved]
  - Paraesthesia [Recovered/Resolved]
  - Dizziness [Recovered/Resolved]

NARRATIVE: CASE EVENT DATE: 20190408
